FAERS Safety Report 5888917-2 (Version None)
Quarter: 2008Q3

REPORT INFORMATION
  Report Type: 
  Country: None (occurrence: None)
  Receive Date: 20080916
  Receipt Date: 20080916
  Transmission Date: 20090109
  Serious: No
  Sender: FDA-Public Use
  Company Number: None

PATIENT
  Age: 31 Year
  Sex: Female
  Weight: 85.2762 kg

DRUGS (4)
  1. LEVOTHYROXINE SODIUM [Suspect]
     Indication: RADIOACTIVE IODINE THERAPY
     Dosage: 175MCG PO 200 MCG PO
     Route: 048
     Dates: start: 20080601
  2. LEVOTHYROXINE SODIUM [Suspect]
     Indication: THYROID CANCER
     Dosage: 175MCG PO 200 MCG PO
     Route: 048
     Dates: start: 20080601
  3. LEVOTHYROXINE SODIUM [Suspect]
     Indication: RADIOACTIVE IODINE THERAPY
     Dosage: 175MCG PO 200 MCG PO
     Route: 048
     Dates: start: 20080910
  4. LEVOTHYROXINE SODIUM [Suspect]
     Indication: THYROID CANCER
     Dosage: 175MCG PO 200 MCG PO
     Route: 048
     Dates: start: 20080910

REACTIONS (2)
  - BLOOD THYROID STIMULATING HORMONE ABNORMAL [None]
  - PHARMACEUTICAL PRODUCT COMPLAINT [None]
